FAERS Safety Report 7595470-4 (Version None)
Quarter: 2011Q3

REPORT INFORMATION
  Report Type: 
  Country: None (occurrence: None)
  Receive Date: 20110707
  Receipt Date: 20110627
  Transmission Date: 20111222
  Serious: Yes (Hospitalization)
  Sender: FDA-Public Use
  Company Number: US-BAXTER-2011BH019348

PATIENT
  Age: 28 Year
  Sex: Female

DRUGS (2)
  1. DIANEAL [Suspect]
     Indication: RENAL FAILURE CHRONIC
     Route: 033
     Dates: start: 20110603
  2. DIANEAL [Suspect]
     Indication: RENAL FAILURE CHRONIC
     Route: 033
     Dates: start: 20110322, end: 20110603

REACTIONS (8)
  - PREMATURE DELIVERY [None]
  - HYPERTENSION [None]
  - PREMATURE LABOUR [None]
  - HYPOTENSION [None]
  - SUPPRESSED LACTATION [None]
  - LABORATORY TEST ABNORMAL [None]
  - BREAST FEEDING [None]
  - MATERNAL EXPOSURE DURING PREGNANCY [None]
